FAERS Safety Report 21849046 (Version 1)
Quarter: 2023Q1

REPORT INFORMATION
  Report Type: Spontaneous
  Country: US (occurrence: US)
  Receive Date: 20230111
  Receipt Date: 20230111
  Transmission Date: 20230417
  Serious: Yes (Other)
  Sender: FDA-Public Use
  Company Number: US-TEVA-2023-US-2843882

PATIENT
  Age: 71 Year
  Sex: Male

DRUGS (1)
  1. ADDERALL [Suspect]
     Active Substance: AMPHETAMINE ASPARTATE\AMPHETAMINE SULFATE\DEXTROAMPHETAMINE SACCHARATE\DEXTROAMPHETAMINE SULFATE
     Indication: Attention deficit hyperactivity disorder
     Route: 065

REACTIONS (6)
  - Suicidal ideation [Unknown]
  - Depression [Unknown]
  - Bradyphrenia [Unknown]
  - Negative thoughts [Unknown]
  - Feeling of despair [Unknown]
  - Product supply issue [Unknown]

NARRATIVE: CASE EVENT DATE: 20221201
